FAERS Safety Report 10209941 (Version 1)
Quarter: 2014Q2

REPORT INFORMATION
  Report Type: Spontaneous
  Country: NZ (occurrence: NZ)
  Receive Date: 20140602
  Receipt Date: 20140602
  Transmission Date: 20141212
  Serious: Yes (Other)
  Sender: FDA-Public Use
  Company Number: PHHY2014NZ066114

PATIENT
  Age: 59 Year
  Sex: Female

DRUGS (1)
  1. ZOMETA [Suspect]
     Dosage: 4 MG, ONCE PER 28 DAYS

REACTIONS (2)
  - Osteoporosis [Unknown]
  - Breast cancer [Unknown]
